FAERS Safety Report 14313970 (Version 1)
Quarter: 2017Q4

REPORT INFORMATION
  Report Type: Spontaneous
  Country: US (occurrence: US)
  Receive Date: 20171220
  Receipt Date: 20171220
  Transmission Date: 20180321
  Serious: No
  Sender: FDA-Public Use
  Company Number: None

PATIENT
  Sex: Male

DRUGS (1)
  1. TEMOZOLOMIDE 140MG UNKNOWN [Suspect]
     Active Substance: TEMOZOLOMIDE
     Indication: BRAIN NEOPLASM MALIGNANT
     Dosage: 280 MG ,5 DAYS Q28D ONCE DAILY BY MOUTH
     Route: 048
     Dates: start: 20170707

REACTIONS (3)
  - Fatigue [None]
  - Musculoskeletal stiffness [None]
  - Nausea [None]
